FAERS Safety Report 15250932 (Version 1)
Quarter: 2018Q3

REPORT INFORMATION
  Report Type: Spontaneous
  Country: US (occurrence: US)
  Receive Date: 20180807
  Receipt Date: 20180807
  Transmission Date: 20181010
  Serious: No
  Sender: FDA-Public Use
  Company Number: US-PERRIGO-18US006065

PATIENT
  Age: 78 Year
  Sex: Female
  Weight: 51.25 kg

DRUGS (9)
  1. DOCUSATE [Concomitant]
     Active Substance: DOCUSATE
     Indication: CONSTIPATION
     Dosage: UNKNOWN, PRN
     Route: 048
  2. LEXAPRO [Concomitant]
     Active Substance: ESCITALOPRAM OXALATE
     Indication: ANXIETY
     Dosage: 5 MG
     Route: 048
     Dates: start: 2011
  3. MULTIVITAMINS, PLAIN [Concomitant]
     Active Substance: VITAMINS
     Indication: SUPPLEMENTATION THERAPY
     Dosage: TWO GUMMIES, QD
     Route: 048
  4. LEXAPRO [Concomitant]
     Active Substance: ESCITALOPRAM OXALATE
     Indication: DEPRESSION
  5. ADVIL [Concomitant]
     Active Substance: IBUPROFEN
     Indication: TOOTHACHE
     Dosage: TWO TABLETS, FOR TWO DAYS
     Route: 048
     Dates: start: 20180531
  6. ORAGEL                             /06236901/ [Concomitant]
     Indication: TOOTHACHE
     Dosage: UNKNOWN, 4 TO 5 TIMES DAILY
     Route: 048
     Dates: start: 20180530, end: 2018
  7. ASPIRIN                            /00002701/ [Concomitant]
     Active Substance: ASPIRIN
     Indication: PROPHYLAXIS
     Dosage: 81 MG, PRN
     Route: 048
  8. MOTRIN IB [Suspect]
     Active Substance: IBUPROFEN
     Indication: TOOTHACHE
     Dosage: 200MG TO 400 MG, Q 4 TO 5 HOURS
     Route: 048
     Dates: start: 20180602, end: 20180604
  9. TUMS [Concomitant]
     Active Substance: CALCIUM CARBONATE
     Indication: DYSPEPSIA
     Dosage: 1 TO 2 TABLETS, PRN
     Route: 048

REACTIONS (5)
  - Drug effect decreased [Unknown]
  - Feeling abnormal [Unknown]
  - Dry mouth [Unknown]
  - Anxiety [Unknown]
  - Tremor [Unknown]

NARRATIVE: CASE EVENT DATE: 20180602
